FAERS Safety Report 25871580 (Version 1)
Quarter: 2025Q4

REPORT INFORMATION
  Report Type: Spontaneous
  Country: EU (occurrence: EU)
  Receive Date: 20251001
  Receipt Date: 20251001
  Transmission Date: 20260118
  Serious: Yes (Hospitalization, Other)
  Sender: NOVARTIS
  Company Number: EU-002147023-NVSC2025FR149725

PATIENT
  Age: 38 Year
  Sex: Male

DRUGS (1)
  1. TEGRETOL [Suspect]
     Active Substance: CARBAMAZEPINE
     Indication: Epilepsy
     Dosage: 200 MG, BID (MORNING, EVENING)
     Route: 065

REACTIONS (8)
  - Inflammation [Unknown]
  - Suicidal ideation [Unknown]
  - Petit mal epilepsy [Unknown]
  - Disorientation [Unknown]
  - Mental disorder [Unknown]
  - Arthralgia [Unknown]
  - Movement disorder [Unknown]
  - Immune system disorder [Unknown]
